FAERS Safety Report 14592633 (Version 6)
Quarter: 2019Q2

REPORT INFORMATION
  Report Type: Spontaneous
  Country: GB (occurrence: GB)
  Receive Date: 20180302
  Receipt Date: 20190604
  Transmission Date: 20190711
  Serious: Yes (Hospitalization, Other)
  Sender: FDA-Public Use
  Company Number: GB-MYLANLABS-2018M1014858

PATIENT
  Age: 61 Year
  Sex: Male

DRUGS (6)
  1. CLOZARIL [Suspect]
     Active Substance: CLOZAPINE
     Indication: SCHIZOPHRENIA
     Dosage: UNK
     Route: 048
     Dates: start: 2009
  2. CLOZARIL [Suspect]
     Active Substance: CLOZAPINE
     Dosage: 250 MG, UNK
     Route: 048
     Dates: start: 2018
  3. CLOZARIL [Suspect]
     Active Substance: CLOZAPINE
     Dosage: UNK
     Route: 048
     Dates: start: 20180425, end: 20180531
  4. CLOZARIL [Suspect]
     Active Substance: CLOZAPINE
     Dosage: UNK
     Route: 048
     Dates: start: 20180611, end: 201806
  5. CLOZARIL [Suspect]
     Active Substance: CLOZAPINE
     Dosage: UNK
     Route: 048
     Dates: start: 20170726, end: 2018
  6. CLOZARIL [Suspect]
     Active Substance: CLOZAPINE
     Dosage: UNK
     Route: 048
     Dates: start: 20180910

REACTIONS (12)
  - Thrombocytopenia [Unknown]
  - Emotional disorder [Unknown]
  - Sepsis [Unknown]
  - Post procedural complication [Unknown]
  - Respiratory tract infection [Unknown]
  - Cardiac operation [Unknown]
  - Pericardial haemorrhage [Unknown]
  - General physical condition abnormal [Unknown]
  - Aortic dilatation [Unknown]
  - Mental impairment [Unknown]
  - Sedation complication [Unknown]
  - Pyrexia [Unknown]

NARRATIVE: CASE EVENT DATE: 2018
